FAERS Safety Report 8274990-3 (Version None)
Quarter: 2012Q2

REPORT INFORMATION
  Report Type: 
  Country: None (occurrence: None)
  Receive Date: 20120411
  Receipt Date: 20120403
  Transmission Date: 20120825
  Serious: Yes (Hospitalization, Other)
  Sender: FDA-Public Use
  Company Number: US-AMGEN-USASP2012021433

PATIENT
  Age: 47 Year
  Sex: Male
  Weight: 79.819 kg

DRUGS (7)
  1. PREDNISONE TAB [Concomitant]
     Dosage: UNK
  2. CARVEDILOL [Concomitant]
     Dosage: UNK
  3. AMLODIPINE [Concomitant]
     Dosage: UNK
  4. ASPIRIN [Concomitant]
     Dosage: UNK
  5. FOSRENOL [Concomitant]
     Dosage: UNK
  6. PROCRIT [Suspect]
     Indication: NEPHROGENIC ANAEMIA
     Dosage: UNK
  7. NEPHROCAPS [Concomitant]
     Dosage: UNK

REACTIONS (3)
  - ANTI-ERYTHROPOIETIN ANTIBODY [None]
  - HOSPITALISATION [None]
  - MARROW HYPERPLASIA [None]
